FAERS Safety Report 6152773-8 (Version None)
Quarter: 2009Q2

REPORT INFORMATION
  Report Type: 
  Country: None (occurrence: None)
  Receive Date: 20090409
  Receipt Date: 20090331
  Transmission Date: 20091009
  Serious: Yes (Other)
  Sender: FDA-Public Use
  Company Number: 2009SP005122

PATIENT
  Age: 57 Year
  Sex: Male

DRUGS (9)
  1. TEMODAR [Suspect]
     Indication: ASTROCYTOMA
     Dosage: 300 MG QD, PO
     Route: 048
     Dates: start: 20090115, end: 20090222
  2. TEMODAR [Suspect]
     Indication: ASTROCYTOMA
     Dosage: 300 MG QD, PO
     Route: 048
     Dates: start: 20090324
  3. CIPROFLOXACIN [Suspect]
     Indication: COLITIS ULCERATIVE
  4. FLAGYL [Suspect]
     Indication: COLITIS ULCERATIVE
  5. KEPPRA [Concomitant]
  6. ATIVAN [Concomitant]
  7. COMPAZINE [Concomitant]
  8. VICODIN [Concomitant]
  9. TEMAZEPAM [Concomitant]

REACTIONS (4)
  - ALANINE AMINOTRANSFERASE INCREASED [None]
  - ASPARTATE AMINOTRANSFERASE INCREASED [None]
  - BLOOD ALKALINE PHOSPHATASE INCREASED [None]
  - LIVER FUNCTION TEST ABNORMAL [None]
